FAERS Safety Report 10691952 (Version 1)
Quarter: 2015Q1

REPORT INFORMATION
  Report Type: Spontaneous
  Country: US (occurrence: US)
  Receive Date: 20150105
  Receipt Date: 20150105
  Transmission Date: 20150720
  Serious: Yes (Hospitalization)
  Sender: FDA-Public Use
  Company Number: US-SUN PHARMACEUTICAL INDUSTRIES LTD-2014SUN02997

PATIENT

DRUGS (4)
  1. LAMIVUDINE. [Concomitant]
     Active Substance: LAMIVUDINE
  2. TOPIRAMATE TABS 100MG [Suspect]
     Active Substance: TOPIRAMATE
     Indication: SEIZURE
     Route: 065
  3. ZIDOVUDINE. [Concomitant]
     Active Substance: ZIDOVUDINE
  4. ATAZANAVIR [Concomitant]
     Active Substance: ATAZANAVIR

REACTIONS (5)
  - Respiratory failure [Unknown]
  - Septic shock [Unknown]
  - Hypokalaemia [Recovered/Resolved]
  - Metabolic acidosis [Unknown]
  - Pneumonia [Unknown]
